FAERS Safety Report 16688066 (Version 7)
Quarter: 2019Q3

REPORT INFORMATION
  Report Type: Spontaneous
  Country: US (occurrence: US)
  Receive Date: 20190809
  Receipt Date: 20190919
  Transmission Date: 20191004
  Serious: Yes (Hospitalization)
  Sender: FDA-Public Use
  Company Number: US-TEVA-2019-US-1088412

PATIENT
  Sex: Female

DRUGS (6)
  1. FUROSEMIDE. [Concomitant]
     Active Substance: FUROSEMIDE
  2. SYNRIBO [Suspect]
     Active Substance: OMACETAXINE MEPESUCCINATE
     Indication: CHRONIC MYELOID LEUKAEMIA
     Dosage: DOSE 2.5 MG/0.71 ML BID FOR 14 DAYS OUT OF 28
     Route: 065
     Dates: start: 20190730
  3. XANAX [Concomitant]
     Active Substance: ALPRAZOLAM
  4. MORPHINE SULFATE. [Concomitant]
     Active Substance: MORPHINE SULFATE
  5. HYDREA [Concomitant]
     Active Substance: HYDROXYUREA
  6. BENZONATATE. [Concomitant]
     Active Substance: BENZONATATE

REACTIONS (16)
  - Dehydration [Unknown]
  - Laboratory test abnormal [Unknown]
  - Feeling abnormal [Unknown]
  - Adverse event [Unknown]
  - Product dose omission [Unknown]
  - Confusional state [Unknown]
  - Limb discomfort [Unknown]
  - Movement disorder [Unknown]
  - Splenomegaly [Unknown]
  - Abdominal pain [Unknown]
  - Gastrointestinal disorder [Unknown]
  - Fatigue [Not Recovered/Not Resolved]
  - Pleural effusion [Unknown]
  - Cough [Unknown]
  - Hyponatraemia [Unknown]
  - Haemoglobin decreased [Not Recovered/Not Resolved]
